FAERS Safety Report 10712804 (Version 1)
Quarter: 2015Q1

REPORT INFORMATION
  Report Type: Spontaneous
  Country: US (occurrence: None)
  Receive Date: 20150114
  Receipt Date: 20150114
  Transmission Date: 20150721
  Serious: Yes (Hospitalization)
  Sender: FDA-Public Use
  Company Number: None

PATIENT
  Age: 64 Year
  Sex: Male
  Weight: 103.8 kg

DRUGS (1)
  1. ATORVASTATIN [Suspect]
     Active Substance: ATORVASTATIN
     Indication: RHABDOMYOLYSIS
     Route: 048
     Dates: start: 20140905, end: 20141007

REACTIONS (1)
  - Myalgia [None]

NARRATIVE: CASE EVENT DATE: 20141004
